FAERS Safety Report 8075359-7 (Version None)
Quarter: 2012Q1

REPORT INFORMATION
  Report Type: 
  Country: None (occurrence: None)
  Receive Date: 20120127
  Receipt Date: 20120119
  Transmission Date: 20120608
  Serious: Yes (Hospitalization)
  Sender: FDA-Public Use
  Company Number: US-BAYER-2011-027206

PATIENT
  Age: 47 Year
  Sex: Female
  Weight: 62.585 kg

DRUGS (3)
  1. YAZ [Suspect]
     Indication: CONTRACEPTION
     Dosage: UNK
     Route: 048
     Dates: start: 20080701, end: 20081001
  2. YASMIN [Suspect]
     Indication: CONTRACEPTION
     Dosage: UNK
     Route: 048
     Dates: start: 20050701, end: 20080701
  3. YASMIN [Suspect]
     Dosage: UNK
     Dates: start: 20010101

REACTIONS (11)
  - DYSPEPSIA [None]
  - ABDOMINAL PAIN [None]
  - FEAR [None]
  - BACK PAIN [None]
  - INJURY [None]
  - ABDOMINAL DISTENSION [None]
  - HEPATIC LESION [None]
  - ABDOMINAL PAIN UPPER [None]
  - PAIN [None]
  - HEPATIC CYST [None]
  - BILIARY DYSKINESIA [None]
